FAERS Safety Report 24857274 (Version 1)
Quarter: 2025Q1

REPORT INFORMATION
  Report Type: Spontaneous
  Country: US (occurrence: US)
  Receive Date: 20250117
  Receipt Date: 20250117
  Transmission Date: 20250409
  Serious: Yes (Death)
  Sender: CALLIDITAS THERAPEUTICS AB
  Company Number: US-Calliditas-2025CAL00074

PATIENT
  Age: 54 Year
  Sex: Female

DRUGS (6)
  1. TARPEYO [Suspect]
     Active Substance: BUDESONIDE
     Indication: IgA nephropathy
     Route: 048
     Dates: start: 20241121
  2. LOSARTAN [Concomitant]
     Active Substance: LOSARTAN
  3. ALBUTEROL [Concomitant]
     Active Substance: ALBUTEROL
  4. GABAPENTIN [Concomitant]
     Active Substance: GABAPENTIN
  5. ZOCOR [Concomitant]
     Active Substance: SIMVASTATIN
  6. IMITREX [Concomitant]
     Active Substance: SUMATRIPTAN SUCCINATE

REACTIONS (1)
  - Death [Fatal]
